FAERS Safety Report 7636155-5 (Version None)
Quarter: 2011Q3

REPORT INFORMATION
  Report Type: 
  Country: None (occurrence: None)
  Receive Date: 20110726
  Receipt Date: 20110718
  Transmission Date: 20111222
  Serious: Yes (Death)
  Sender: FDA-Public Use
  Company Number: VN-ROCHE-791463

PATIENT
  Age: 18 Year
  Sex: Female

DRUGS (1)
  1. OSELTAMIVIR [Suspect]
     Dosage: FOR 5 DAYS
     Route: 065
     Dates: start: 20050101

REACTIONS (2)
  - PATHOGEN RESISTANCE [None]
  - DRUG INEFFECTIVE [None]
